FAERS Safety Report 12789679 (Version 2)
Quarter: 2016Q4

REPORT INFORMATION
  Report Type: Report from Study
  Country: US (occurrence: US)
  Receive Date: 20160928
  Receipt Date: 20161031
  Transmission Date: 20170207
  Serious: Yes (Hospitalization, Other)
  Sender: FDA-Public Use
  Company Number: US-GILEAD-2016-0235158

PATIENT
  Age: 72 Year
  Sex: Female

DRUGS (40)
  1. ATROVENT [Concomitant]
     Active Substance: IPRATROPIUM BROMIDE
  2. SYSTANE (HYPROMELLOSE 2910 (4000 MPA.S)) [Concomitant]
     Active Substance: HYPROMELLOSE 2910 (4000 MPA.S)
  3. COZAAR [Concomitant]
     Active Substance: LOSARTAN POTASSIUM
  4. CALCIUM 500+D [Concomitant]
     Active Substance: CALCIUM\VITAMIN D
  5. HYDROCORTISONE ACETATE. [Concomitant]
     Active Substance: HYDROCORTISONE ACETATE
  6. MULTIVITAMIN                       /00097801/ [Concomitant]
     Active Substance: VITAMINS
  7. DEMADEX [Concomitant]
     Active Substance: TORSEMIDE
  8. ZOLOFT [Concomitant]
     Active Substance: SERTRALINE HYDROCHLORIDE
  9. FLONASE                            /00908302/ [Concomitant]
     Active Substance: MOMETASONE FUROATE
  10. UPTRAVI [Concomitant]
     Active Substance: SELEXIPAG
  11. RECLAST [Concomitant]
     Active Substance: ZOLEDRONIC ACID
  12. PREMARIN [Concomitant]
     Active Substance: ESTROGENS, CONJUGATED
  13. NEURONTIN [Concomitant]
     Active Substance: GABAPENTIN
  14. TYLENOL [Concomitant]
     Active Substance: ACETAMINOPHEN
  15. APRESOLINE HYDROCHLORIDE [Concomitant]
     Active Substance: HYDRALAZINE HYDROCHLORIDE
  16. ADEMPAS [Concomitant]
     Active Substance: RIOCIGUAT
  17. ULTRAM [Concomitant]
     Active Substance: TRAMADOL HYDROCHLORIDE
  18. PROTONIX                           /00661201/ [Concomitant]
     Active Substance: OMEPRAZOLE
  19. MEDROL [Concomitant]
     Active Substance: METHYLPREDNISOLONE
  20. MYSOLINE [Concomitant]
     Active Substance: PRIMIDONE
  21. SHARK LIVER OIL [Concomitant]
     Active Substance: SHARK LIVER OIL
  22. OXYGEN. [Concomitant]
     Active Substance: OXYGEN
  23. VITAMIN E                          /00110501/ [Concomitant]
     Active Substance: TOCOPHEROL
  24. TIKOSYN [Concomitant]
     Active Substance: DOFETILIDE
  25. WELLBUTRIN [Concomitant]
     Active Substance: BUPROPION HYDROCHLORIDE
  26. FERROUS SULFATE. [Concomitant]
     Active Substance: FERROUS SULFATE
  27. TOPAMAX [Concomitant]
     Active Substance: TOPIRAMATE
  28. AMBRISENTAN [Suspect]
     Active Substance: AMBRISENTAN
     Indication: PULMONARY HYPERTENSION
     Dosage: 10 MG, QD
     Route: 065
     Dates: start: 20150923
  29. PROAIR HFA [Concomitant]
     Active Substance: ALBUTEROL SULFATE
  30. LORATADINE. [Concomitant]
     Active Substance: LORATADINE
  31. ALDACTONE [Concomitant]
     Active Substance: SPIRONOLACTONE
  32. FOLVITE                            /00024201/ [Concomitant]
  33. LIPITOR [Concomitant]
     Active Substance: ATORVASTATIN CALCIUM
  34. LUMIGAN [Concomitant]
     Active Substance: BIMATOPROST
  35. PRADAXA [Concomitant]
     Active Substance: DABIGATRAN ETEXILATE MESYLATE
  36. B COMPLEX                          /00322001/ [Concomitant]
     Active Substance: CALCIUM PANTOTHENATE\CYANOCOBALAMIN\NIACINAMIDE\PYRIDOXINE HYDROCHLORIDE\RIBOFLAVIN\THIAMINE HYDROCHLORIDE
  37. COENZYME Q10 [Concomitant]
     Active Substance: UBIDECARENONE
  38. OCUVITE [Concomitant]
     Active Substance: VITAMINS
  39. NOVOLOG [Concomitant]
     Active Substance: INSULIN ASPART
  40. SYSTANE BALANCE [Concomitant]
     Active Substance: PROPYLENE GLYCOL

REACTIONS (3)
  - Urinary tract infection [Unknown]
  - Dyspnoea at rest [Recovered/Resolved]
  - Dyspnoea exertional [Recovered/Resolved]

NARRATIVE: CASE EVENT DATE: 20160922
